FAERS Safety Report 4411199-5 (Version None)
Quarter: 2004Q2

REPORT INFORMATION
  Report Type: 
  Country: None (occurrence: None)
  Receive Date: 20040630
  Receipt Date: 20040513
  Transmission Date: 20050107
  Serious: No
  Sender: FDA-Public Use
  Company Number: 04P-163-0260929-00

PATIENT
  Age: 77 Year
  Sex: Female
  Weight: 72.5755 kg

DRUGS (7)
  1. HUMIRA [Suspect]
     Indication: RHEUMATOID ARTHRITIS
     Dosage: 40 MG, 1 IN 2 WK, SUBCUTANEOUS
     Route: 058
     Dates: start: 20031001
  2. FUROSEMIDE [Concomitant]
  3. ALLOPURINOL [Concomitant]
  4. NAPROXEN [Concomitant]
  5. IBUPROFEN [Concomitant]
  6. LEKOVIT CA [Concomitant]
  7. GLIPIZIDE ER [Concomitant]

REACTIONS (3)
  - CONDITION AGGRAVATED [None]
  - COUGH [None]
  - DRY MOUTH [None]
